FAERS Safety Report 21515674 (Version 1)
Quarter: 2022Q4

REPORT INFORMATION
  Report Type: Spontaneous
  Country: US (occurrence: None)
  Receive Date: 20221027
  Receipt Date: 20221027
  Transmission Date: 20230112
  Serious: No
  Sender: FDA-Public Use
  Company Number: None

PATIENT
  Age: 49 Year
  Sex: Male
  Weight: 85.95 kg

DRUGS (4)
  1. LYUMJEV [Suspect]
     Active Substance: INSULIN LISPRO-AABC
     Indication: Type 1 diabetes mellitus
     Dosage: OTHER STRENGTH : INSULIN UNITS;?OTHER QUANTITY : 70 UNITS PER DAY;?OTHER FREQUENCY : CONTINUOUS;?
     Route: 058
     Dates: start: 20220826, end: 20221026
  2. omnipod [Concomitant]
  3. decom g6 [Concomitant]
  4. humalog u-100 [Concomitant]

REACTIONS (8)
  - Device delivery system issue [None]
  - Blood glucose increased [None]
  - Injection site pain [None]
  - Medical device site pain [None]
  - Injection site mass [None]
  - Therapeutic response decreased [None]
  - Atypical dose response relationship [None]
  - Medical device site pain [None]

NARRATIVE: CASE EVENT DATE: 20220826
